FAERS Safety Report 15316267 (Version 1)
Quarter: 2018Q3

REPORT INFORMATION
  Report Type: Spontaneous
  Country: US (occurrence: US)
  Receive Date: 20180816
  Receipt Date: 20180816
  Transmission Date: 20181010
  Serious: Yes (Death, Disabling)
  Sender: FDA-Public Use
  Company Number: None

PATIENT
  Age: 92 Year
  Sex: Male

DRUGS (1)
  1. ASPIRIN. [Suspect]
     Active Substance: ASPIRIN
     Route: 048

REACTIONS (8)
  - Rectal haemorrhage [None]
  - Hypotension [None]
  - Leukocytosis [None]
  - Lactic acidosis [None]
  - Duodenal ulcer [None]
  - Cardiac arrest [None]
  - Atrial fibrillation [None]
  - Bradycardia [None]

NARRATIVE: CASE EVENT DATE: 20170604
